FAERS Safety Report 15520182 (Version 4)
Quarter: 2019Q3

REPORT INFORMATION
  Report Type: Report from Study
  Country: DE (occurrence: DE)
  Receive Date: 20181017
  Receipt Date: 20190806
  Transmission Date: 20191004
  Serious: Yes (Hospitalization)
  Sender: FDA-Public Use
  Company Number: PHHY2018DE125095

PATIENT
  Age: 53 Year
  Sex: Female

DRUGS (6)
  1. GILENYA [Suspect]
     Active Substance: FINGOLIMOD HYDROCHLORIDE
     Indication: MULTIPLE SCLEROSIS
     Dosage: 0.5 OT, QD
     Route: 048
  2. L-THYROXINE [Concomitant]
     Active Substance: LEVOTHYROXINE
     Indication: PRODUCT USED FOR UNKNOWN INDICATION
     Dosage: 1 DF, QD
     Route: 065
  3. TEGRETAL [Concomitant]
     Active Substance: CARBAMAZEPINE
     Indication: PRODUCT USED FOR UNKNOWN INDICATION
     Dosage: 3 DF, BID
     Route: 065
  4. BISOPROLOL [Concomitant]
     Active Substance: BISOPROLOL
     Indication: PRODUCT USED FOR UNKNOWN INDICATION
     Dosage: 0.5 DF, BID
     Route: 065
  5. CANDECOR [Concomitant]
     Active Substance: CANDESARTAN CILEXETIL
     Indication: PRODUCT USED FOR UNKNOWN INDICATION
     Dosage: 0.5 DF (32 MG/12.5 MG), QD
     Route: 065
  6. DULOXALTA [Concomitant]
     Indication: PRODUCT USED FOR UNKNOWN INDICATION
     Dosage: 2 DF, BID
     Route: 065

REACTIONS (17)
  - Blood pressure systolic increased [Unknown]
  - Chest pain [Unknown]
  - Pulmonary infarction [Unknown]
  - Menorrhagia [Recovered/Resolved]
  - Pulmonary embolism [Unknown]
  - Breast mass [Unknown]
  - Arthralgia [Unknown]
  - Constipation [Unknown]
  - Respiratory rate decreased [Unknown]
  - Blood lactate dehydrogenase increased [Unknown]
  - Deep vein thrombosis [Unknown]
  - Cardiomegaly [Unknown]
  - Muscle spasticity [Unknown]
  - Peripheral swelling [Unknown]
  - Iron deficiency anaemia [Unknown]
  - Dyspnoea [Unknown]
  - Pneumonia [Unknown]

NARRATIVE: CASE EVENT DATE: 20170126
